FAERS Safety Report 21985753 (Version 1)
Quarter: 2023Q1

REPORT INFORMATION
  Report Type: Spontaneous
  Country: US (occurrence: None)
  Receive Date: 20230211
  Receipt Date: 20230211
  Transmission Date: 20230418
  Serious: No
  Sender: FDA-Public Use
  Company Number: None

PATIENT
  Age: 36 Year
  Sex: Female
  Weight: 60.75 kg

DRUGS (2)
  1. ARTNATURALS HAND SANITIZER [Suspect]
     Active Substance: ALCOHOL
     Indication: Drug therapy
     Dosage: FREQUENCY : EVERY 4 HOURS;?
     Dates: end: 20210820
  2. MIDOL (FOR MENSTRUATION) [Concomitant]

REACTIONS (2)
  - Rash [None]
  - Recalled product administered [None]

NARRATIVE: CASE EVENT DATE: 20200520
